FAERS Safety Report 6074698-9 (Version None)
Quarter: 2009Q1

REPORT INFORMATION
  Report Type: 
  Country: None (occurrence: None)
  Receive Date: 20090209
  Receipt Date: 20090209
  Transmission Date: 20090719
  Serious: No
  Sender: FDA-Public Use
  Company Number: None

PATIENT
  Age: 59 Year
  Sex: Female
  Weight: 77.1115 kg

DRUGS (2)
  1. PEPCID AC [Suspect]
     Indication: DYSPEPSIA
     Dosage: ON AND OFF FOR HEARTBURN
     Dates: start: 20080801, end: 20081201
  2. FAMOTIDINE [Suspect]

REACTIONS (3)
  - ANGIOEDEMA [None]
  - DRUG HYPERSENSITIVITY [None]
  - TOOTHACHE [None]
